FAERS Safety Report 6843516-0 (Version None)
Quarter: 2010Q3

REPORT INFORMATION
  Report Type: 
  Country: None (occurrence: None)
  Receive Date: 20100712
  Receipt Date: 20100701
  Transmission Date: 20110219
  Serious: Yes (Death)
  Sender: FDA-Public Use
  Company Number: 633907

PATIENT
  Age: 95 Year
  Sex: Female

DRUGS (4)
  1. PIPERACILLIN TAZOBACTAM 4G/ 0.5G POWDER FOR SOLUTION (PIPERACILLIN AND [Suspect]
     Indication: URINARY TRACT INFECTION
     Dosage: 4.5 G GRAM(S), INTRAVENOUS BOLUS
     Route: 040
     Dates: start: 20100630, end: 20100630
  2. TRIMETHOPRIM) [Concomitant]
  3. ELECTROLYTE SOLUTIONS [Concomitant]
  4. SALINE [Concomitant]

REACTIONS (2)
  - CARDIAC ARREST [None]
  - RESPIRATORY ARREST [None]
